FAERS Safety Report 5669604-2 (Version None)
Quarter: 2008Q1

REPORT INFORMATION
  Report Type: 
  Country: None (occurrence: None)
  Receive Date: 20080317
  Receipt Date: 20080229
  Transmission Date: 20080703
  Serious: Yes (Death, Hospitalization, Disabling)
  Sender: FDA-Public Use
  Company Number: JP-BRACCO-000119

PATIENT
  Age: 46 Year
  Sex: Female

DRUGS (9)
  1. IOPAMIRON [Suspect]
     Indication: COMPUTERISED TOMOGRAM
     Route: 042
     Dates: start: 20080111, end: 20080111
  2. METILON [Concomitant]
     Route: 065
     Dates: start: 20080111
  3. THEOLONG [Concomitant]
     Route: 048
  4. TASUOMIN [Concomitant]
     Indication: BREAST CANCER
     Route: 048
     Dates: start: 20031201
  5. OXYGEN [Concomitant]
     Dosage: 5 L/MIN
     Route: 065
     Dates: start: 20080111
  6. SOLU-MEDROL [Concomitant]
     Route: 042
     Dates: start: 20080111
  7. BOSMIN [Concomitant]
     Route: 065
     Dates: start: 20080111
  8. ATROPINE SULFATE [Concomitant]
     Route: 065
     Dates: start: 20080111
  9. CATABON [Concomitant]
     Dosage: 20 ML/HR
     Route: 065
     Dates: start: 20080111, end: 20080213

REACTIONS (9)
  - ANAPHYLACTOID REACTION [None]
  - BLOOD PRESSURE IMMEASURABLE [None]
  - CARDIAC ARREST [None]
  - CYANOSIS [None]
  - HYPOXIC ENCEPHALOPATHY [None]
  - LOSS OF CONSCIOUSNESS [None]
  - PYREXIA [None]
  - RESPIRATORY ARREST [None]
  - STATUS ASTHMATICUS [None]
